FAERS Safety Report 8864630 (Version 1)
Quarter: 2012Q4

REPORT INFORMATION
  Report Type: 
  Country: US (occurrence: US)
  Receive Date: 20121024
  Receipt Date: 20121024
  Transmission Date: 20130627
  Serious: No
  Sender: FDA-Public Use
  Company Number: US-AMGEN-USASP2011068513

PATIENT
  Age: 20 Year
  Sex: Female
  Weight: 99.77 kg

DRUGS (9)
  1. ENBREL [Suspect]
     Indication: PRODUCT USED FOR UNKNOWN INDICATION
     Dosage: 50 mg, qwk
     Route: 058
  2. EFFEXOR [Concomitant]
     Dosage: 25 mg, UNK
  3. CELEBREX [Concomitant]
     Dosage: 50 mg, UNK
  4. FOLIC ACID [Concomitant]
     Dosage: 1 mg, UNK
  5. LAMICTAL [Concomitant]
     Dosage: 100 mg, UNK
  6. SULFASALAZIN [Concomitant]
     Dosage: 500 mg, UNK
  7. VITAMIN D [Concomitant]
     Dosage: 1000 IU, UNK
  8. MIRENA [Concomitant]
  9. METHOTREXATE [Concomitant]
     Dosage: 25 mg, UNK

REACTIONS (2)
  - Injection site erythema [Unknown]
  - Injection site pruritus [Unknown]
